FAERS Safety Report 4389702-3 (Version None)
Quarter: 2004Q2

REPORT INFORMATION
  Report Type: 
  Country: None (occurrence: None)
  Receive Date: 20040629
  Receipt Date: 20030903
  Transmission Date: 20050107
  Serious: Yes (Hospitalization)
  Sender: FDA-Public Use
  Company Number: US-JNJFOC-20030900953

PATIENT
  Age: 62 Year
  Sex: Male

DRUGS (10)
  1. DURAGESIC [Suspect]
     Indication: PAIN
     Dosage: 75 UG/HR, 1 IN 72 HOUR, TRANSDERMAL
     Route: 062
     Dates: start: 20030601, end: 20030701
  2. OXYCODONE [Concomitant]
  3. PERCOCET [Concomitant]
  4. TAMEZEPAM (TEMAZEPAM) [Concomitant]
  5. ZOLOFT [Concomitant]
  6. XANAX [Concomitant]
  7. BACLOFEN [Concomitant]
  8. PROAMATINE [Concomitant]
  9. INSULIN [Concomitant]
  10. ULTRAM [Concomitant]

REACTIONS (3)
  - ASTHENIA [None]
  - DISORIENTATION [None]
  - SPEECH DISORDER [None]
